FAERS Safety Report 21451402 (Version 1)
Quarter: 2022Q4

REPORT INFORMATION
  Report Type: Spontaneous
  Country: US (occurrence: US)
  Receive Date: 20221013
  Receipt Date: 20221013
  Transmission Date: 20230113
  Serious: No
  Sender: FDA-Public Use
  Company Number: US-INDIVIOR US-INDV-133967-2022

PATIENT
  Sex: Female

DRUGS (2)
  1. SUBUTEX [Suspect]
     Active Substance: BUPRENORPHINE HYDROCHLORIDE
     Indication: Product used for unknown indication
     Dosage: 8 MILLIGRAM, QD
     Route: 065
     Dates: start: 2018
  2. SUBUTEX [Suspect]
     Active Substance: BUPRENORPHINE HYDROCHLORIDE
     Dosage: 4 MILLIGRAM, QD
     Route: 060

REACTIONS (7)
  - Dental discomfort [Not Recovered/Not Resolved]
  - Tooth fracture [Unknown]
  - Bruxism [Unknown]
  - Stomatitis [Unknown]
  - Dry mouth [Unknown]
  - Tooth disorder [Not Recovered/Not Resolved]
  - Wrong technique in product usage process [Not Recovered/Not Resolved]
